FAERS Safety Report 7329143-X (Version None)
Quarter: 2011Q1

REPORT INFORMATION
  Report Type: 
  Country: None (occurrence: None)
  Receive Date: 20110303
  Receipt Date: 20110224
  Transmission Date: 20110831
  Serious: Yes (Death, Other)
  Sender: FDA-Public Use
  Company Number: JP-BAYER-2011-017925

PATIENT
  Sex: Male
  Weight: 55 kg

DRUGS (7)
  1. URSO 250 [Concomitant]
     Indication: POLYURIA
     Dosage: DAILY DOSE 300 MG
     Route: 048
  2. NEXAVAR [Suspect]
     Indication: HEPATIC NEOPLASM MALIGNANT
     Dosage: DAILY DOSE 800 MG
     Route: 048
     Dates: start: 20101025, end: 20110118
  3. LIVACT [Concomitant]
     Indication: HYPOALBUMINAEMIA
     Dosage: DAILY DOSE 12.45 G
     Route: 048
  4. LASIX [Concomitant]
     Indication: POLYURIA
     Dosage: DAILY DOSE 40 MG
     Route: 048
  5. ULCERLMIN [Concomitant]
     Indication: GASTRITIS PROPHYLAXIS
     Dosage: DAILY DOSE 3 G
     Route: 048
  6. GASTER D [Concomitant]
     Indication: PROPHYLAXIS
     Dosage: DAILY DOSE 40 MG
     Route: 048
  7. ALDACTONE [Concomitant]
     Indication: POLYURIA
     Dosage: DAILY DOSE 25 MG
     Route: 048

REACTIONS (3)
  - JAUNDICE [None]
  - ASCITES [None]
  - HEPATIC NEOPLASM MALIGNANT [None]
